FAERS Safety Report 6168029-3 (Version None)
Quarter: 2009Q2

REPORT INFORMATION
  Report Type: 
  Country: None (occurrence: None)
  Receive Date: 20090423
  Receipt Date: 20090423
  Transmission Date: 20091009
  Serious: No
  Sender: FDA-Public Use
  Company Number: None

PATIENT
  Sex: Male
  Weight: 68.0396 kg

DRUGS (1)
  1. AMBIEN CR [Suspect]
     Indication: INSOMNIA
     Dosage: 1 TAB ONCE PRN QD PO
     Route: 048
     Dates: start: 20090414, end: 20090417

REACTIONS (2)
  - DRUG EFFECT PROLONGED [None]
  - NIGHTMARE [None]
